FAERS Safety Report 10861012 (Version 2)
Quarter: 2015Q2

REPORT INFORMATION
  Report Type: Report from Study
  Country: US (occurrence: US)
  Receive Date: 20150224
  Receipt Date: 20150401
  Transmission Date: 20150821
  Serious: Yes (Hospitalization)
  Sender: FDA-Public Use
  Company Number: US-BIOGENIDEC-2015BI017196

PATIENT
  Age: 48 Year
  Sex: Female

DRUGS (1)
  1. TYSABRI [Suspect]
     Active Substance: NATALIZUMAB
     Indication: MULTIPLE SCLEROSIS
     Route: 042
     Dates: start: 20140620, end: 201501

REACTIONS (13)
  - Periorbital contusion [Not Recovered/Not Resolved]
  - Contusion [Unknown]
  - Dyspnoea [Recovered/Resolved]
  - Rash [Recovered/Resolved]
  - Temperature intolerance [Unknown]
  - Urinary tract infection [Recovered/Resolved]
  - Arthropathy [Recovered/Resolved]
  - Vision blurred [Not Recovered/Not Resolved]
  - Ulcer [Recovered/Resolved]
  - Hypoaesthesia [Not Recovered/Not Resolved]
  - Bone contusion [Not Recovered/Not Resolved]
  - Visual impairment [Not Recovered/Not Resolved]
  - Multiple sclerosis relapse [Not Recovered/Not Resolved]

NARRATIVE: CASE EVENT DATE: 2014
